FAERS Safety Report 7613109-6 (Version None)
Quarter: 2011Q3

REPORT INFORMATION
  Report Type: 
  Country: None (occurrence: None)
  Receive Date: 20110713
  Receipt Date: 20110520
  Transmission Date: 20111222
  Serious: No
  Sender: FDA-Public Use
  Company Number: US-005426

PATIENT
  Sex: Male
  Weight: 85.7298 kg

DRUGS (16)
  1. NOVOLOG [Concomitant]
  2. GLYBURIDE [Concomitant]
  3. NIACIN [Concomitant]
  4. ASPIRIN [Concomitant]
  5. ISSORBIDE MONONITRATE [Concomitant]
  6. LISINOPRIL [Concomitant]
  7. CELLCEPT [Concomitant]
  8. LANTUS [Concomitant]
  9. CIPROFLOXACIN [Concomitant]
  10. PREDNISONE [Concomitant]
  11. PRAVASTATIN SODIUM [Concomitant]
  12. COREG [Concomitant]
  13. PROGRAF [Concomitant]
  14. FOSAMAX [Concomitant]
  15. PRILOSEC [Concomitant]
  16. DEGARELIX 240 MG [Suspect]
     Indication: PROSTATE CANCER
     Dosage: (240 MG 1X SUBCUTANEOUS)
     Route: 058
     Dates: start: 20110418

REACTIONS (10)
  - INJECTION SITE PRURITUS [None]
  - HOT FLUSH [None]
  - INJECTION SITE DISCOMFORT [None]
  - INJECTION SITE SWELLING [None]
  - INJECTION SITE ERYTHEMA [None]
  - FATIGUE [None]
  - DISCOMFORT [None]
  - ASTHENIA [None]
  - INJECTION SITE EXFOLIATION [None]
  - MUSCULOSKELETAL STIFFNESS [None]
